FAERS Safety Report 18258480 (Version 1)
Quarter: 2020Q3

REPORT INFORMATION
  Report Type: Report from Study
  Country: CA (occurrence: CA)
  Receive Date: 20200911
  Receipt Date: 20200911
  Transmission Date: 20201103
  Serious: Yes (Hospitalization)
  Sender: FDA-Public Use
  Company Number: CA-BIOGEN-2020BI00875541

PATIENT
  Age: 41 Year
  Sex: Male

DRUGS (1)
  1. TECFIDERA [Suspect]
     Active Substance: DIMETHYL FUMARATE
     Indication: MULTIPLE SCLEROSIS
     Dosage: MAINTENANCE DOSE
     Route: 065
     Dates: start: 20160801

REACTIONS (5)
  - Road traffic accident [Recovered/Resolved]
  - Patella fracture [Unknown]
  - Mobility decreased [Unknown]
  - Ligament rupture [Unknown]
  - Gait inability [Unknown]

NARRATIVE: CASE EVENT DATE: 2020
